FAERS Safety Report 9361923 (Version 1)
Quarter: 2013Q2

REPORT INFORMATION
  Report Type: Spontaneous
  Country: BR (occurrence: BR)
  Receive Date: 20130621
  Receipt Date: 20130621
  Transmission Date: 20140414
  Serious: Yes (Hospitalization)
  Sender: FDA-Public Use
  Company Number: BR-MERCK-1306BRA009846

PATIENT
  Age: 52 Year
  Sex: Male
  Weight: 80 kg

DRUGS (4)
  1. PEGINTRON [Suspect]
     Indication: HEPATITIS C
     Dosage: 100 MICROGRAM, QW
     Route: 058
     Dates: start: 201305, end: 201305
  2. ALDACTONE TABLETS [Concomitant]
     Indication: FLUID RETENTION
     Dosage: 80 MG, Q12H
     Route: 048
     Dates: start: 2006
  3. RIBAVIRIN (NON-MERCK) [Concomitant]
     Indication: HEPATITIS C
     Dosage: 1000 MG, BID
     Route: 048
     Dates: start: 201305, end: 201305
  4. RIBAVIRIN (NON-MERCK) [Concomitant]
     Dosage: 500 MG, QPM
     Route: 048
     Dates: start: 201305, end: 201305

REACTIONS (5)
  - Haematemesis [Recovered/Resolved]
  - Intestinal haemorrhage [Recovered/Resolved]
  - Retching [Recovered/Resolved]
  - Malaise [Recovered/Resolved]
  - Pyrexia [Recovered/Resolved]
